FAERS Safety Report 20940554 (Version 1)
Quarter: 2022Q2

REPORT INFORMATION
  Report Type: Spontaneous
  Country: US (occurrence: US)
  Receive Date: 20220609
  Receipt Date: 20220609
  Transmission Date: 20220721
  Serious: Yes (Other)
  Sender: FDA-Public Use
  Company Number: US-MALLINCKRODT-T202201492

PATIENT
  Sex: Male
  Weight: 142 kg

DRUGS (1)
  1. H.P. ACTHAR [Suspect]
     Active Substance: CORTICOTROPIN
     Indication: Nephrotic syndrome
     Dosage: 1 MILLILITER (80 UNITS), TWICE A WEEK
     Route: 058
     Dates: start: 202008

REACTIONS (3)
  - Heart rate abnormal [Unknown]
  - Cardiac therapeutic procedure [Unknown]
  - Pollakiuria [Not Recovered/Not Resolved]
